FAERS Safety Report 21640121 (Version 1)
Quarter: 2022Q4

REPORT INFORMATION
  Report Type: Spontaneous
  Country: US (occurrence: US)
  Receive Date: 20221124
  Receipt Date: 20221124
  Transmission Date: 20230113
  Serious: No
  Sender: FDA-Public Use
  Company Number: US-JNJFOC-20221140387

PATIENT
  Age: 70 Year
  Sex: Female

DRUGS (1)
  1. INVEGA [Suspect]
     Active Substance: PALIPERIDONE
     Indication: Mood swings
     Route: 050

REACTIONS (3)
  - Sedation [Unknown]
  - Wrong technique in product usage process [Unknown]
  - Off label use [Unknown]
